FAERS Safety Report 20896725 (Version 1)
Quarter: 2022Q2

REPORT INFORMATION
  Report Type: Spontaneous
  Country: GB (occurrence: GR)
  Receive Date: 20220531
  Receipt Date: 20220531
  Transmission Date: 20220721
  Serious: Yes (Other)
  Sender: FDA-Public Use
  Company Number: GR-ACRAF SpA-2022-027772

PATIENT

DRUGS (1)
  1. LATUDA [Suspect]
     Active Substance: LURASIDONE HYDROCHLORIDE
     Indication: Psychotic disorder
     Dosage: UNK
     Route: 048

REACTIONS (12)
  - Thrombosis [Unknown]
  - Chest pain [Unknown]
  - Ageusia [Unknown]
  - Memory impairment [Unknown]
  - Flatulence [Unknown]
  - Limb discomfort [Unknown]
  - Nervousness [Unknown]
  - Weight increased [Unknown]
  - Sleep disorder [Unknown]
  - Rash [Unknown]
  - Breast enlargement [Unknown]
  - Off label use [Unknown]
